FAERS Safety Report 16904454 (Version 1)
Quarter: 2019Q4

REPORT INFORMATION
  Report Type: Spontaneous
  Country: US (occurrence: US)
  Receive Date: 20190819
  Receipt Date: 20190819
  Transmission Date: 20200122
  Serious: No
  Sender: FDA-Public Use
  Company Number: None

PATIENT

DRUGS (1)
  1. AZITHROMYCIN 200MG/5ML 9.5 ML QD [Suspect]
     Active Substance: AZITHROMYCIN

REACTIONS (2)
  - Product dispensing error [None]
  - Extra dose administered [None]
